FAERS Safety Report 7404511-6 (Version None)
Quarter: 2011Q2

REPORT INFORMATION
  Report Type: 
  Country: None (occurrence: None)
  Receive Date: 20110409
  Receipt Date: 20110409
  Transmission Date: 20111010
  Serious: Yes (Hospitalization, Other)
  Sender: FDA-Public Use
  Company Number: CA-ABBOTT-10P-028-0643013-00

PATIENT
  Sex: Female
  Weight: 56.75 kg

DRUGS (4)
  1. ALESSE [Concomitant]
     Indication: CONTRACEPTION
     Route: 048
     Dates: start: 20020101
  2. METHOTREXATE [Concomitant]
     Indication: PRODUCT USED FOR UNKNOWN INDICATION
     Route: 030
     Dates: start: 20090901, end: 20100301
  3. VITAMIN B-12 [Concomitant]
     Indication: COLECTOMY
     Route: 030
     Dates: start: 20090101
  4. HUMIRA [Suspect]
     Indication: CROHN'S DISEASE
     Route: 058
     Dates: start: 20091027, end: 20100309

REACTIONS (4)
  - NASOPHARYNGITIS [None]
  - OPEN WOUND [None]
  - FISTULA DISCHARGE [None]
  - FEMALE GENITAL TRACT FISTULA [None]
